FAERS Safety Report 4758072-0 (Version None)
Quarter: 2005Q3

REPORT INFORMATION
  Report Type: 
  Country: None (occurrence: None)
  Receive Date: 20050829
  Receipt Date: 20050818
  Transmission Date: 20060218
  Serious: Yes (Hospitalization)
  Sender: FDA-Public Use
  Company Number: 2005117648

PATIENT
  Age: 80 Year
  Sex: Male

DRUGS (1)
  1. GENOTROPIN [Suspect]
     Indication: OFF LABEL USE
     Dosage: 0.6 MG, 3 TIMES WEEKLY (5.3  MG, SINGLE), UNKNOWN
     Dates: start: 20000419, end: 20050815

REACTIONS (1)
  - MYOCARDIAL INFARCTION [None]
